FAERS Safety Report 8025496-8 (Version None)
Quarter: 2012Q1

REPORT INFORMATION
  Report Type: 
  Country: None (occurrence: None)
  Receive Date: 20120105
  Receipt Date: 20110105
  Transmission Date: 20120608
  Serious: Yes (Hospitalization)
  Sender: FDA-Public Use
  Company Number: JP-BAYER-2010-003810

PATIENT
  Age: 68 Year
  Sex: Female

DRUGS (9)
  1. LIVACT [Concomitant]
     Indication: HEPATIC CIRRHOSIS
     Dosage: DAILY DOSE 3 DF
     Route: 048
  2. ALDACTONE [Concomitant]
     Indication: HEPATIC CIRRHOSIS
     Dosage: DAILY DOSE 12.5 MG
     Route: 048
  3. LASIX [Concomitant]
     Indication: HEPATIC CIRRHOSIS
     Dosage: DAILY DOSE 10 MG
     Route: 048
  4. MAGMITT [Concomitant]
     Indication: CONSTIPATION
     Dosage: DAILY DOSE 500 MG
     Route: 048
  5. OXATOWA [Concomitant]
     Route: 048
  6. FAMOTIDINE [Concomitant]
     Dosage: DAILY DOSE 20 MG
     Route: 065
  7. NEXAVAR [Suspect]
     Indication: HEPATIC NEOPLASM MALIGNANT
     Dosage: 200 MG, BID
     Route: 048
     Dates: start: 20101028, end: 20101105
  8. NEXAVAR [Suspect]
     Indication: METASTASES TO LUNG
  9. URSO 250 [Concomitant]
     Indication: HEPATIC CIRRHOSIS
     Dosage: DAILY DOSE 600 MG
     Route: 048

REACTIONS (1)
  - DIZZINESS [None]
